FAERS Safety Report 13917559 (Version 8)
Quarter: 2018Q2

REPORT INFORMATION
  Report Type: Report from Study
  Country: AT (occurrence: AT)
  Receive Date: 20170829
  Receipt Date: 20180517
  Transmission Date: 20180711
  Serious: Yes (Death, Hospitalization, Other)
  Sender: FDA-Public Use
  Company Number: PHHY2017AT124252

PATIENT
  Age: 60 Year
  Sex: Male
  Weight: 103.2 kg

DRUGS (4)
  1. MEKINIST [Suspect]
     Active Substance: TRAMETINIB DIMETHYL SULFOXIDE
     Dosage: 1 MG, UNK
     Route: 048
     Dates: start: 20170828, end: 20171123
  2. TAFINLAR [Suspect]
     Active Substance: DABRAFENIB MESYLATE
     Indication: MALIGNANT MELANOMA
     Dosage: 2 DF, BID (2-0-2)
     Route: 048
     Dates: start: 20170621, end: 20170819
  3. MEKINIST [Suspect]
     Active Substance: TRAMETINIB DIMETHYL SULFOXIDE
     Indication: MALIGNANT MELANOMA
     Dosage: 1 DF, QD (1-0-0)
     Route: 048
     Dates: start: 20170621, end: 20170818
  4. TAFINLAR [Suspect]
     Active Substance: DABRAFENIB MESYLATE
     Dosage: 150 MG, UNK
     Route: 048
     Dates: start: 20170828, end: 20171123

REACTIONS (11)
  - Malignant neoplasm progression [Fatal]
  - Pancytopenia [Recovered/Resolved]
  - Pyrexia [Recovered/Resolved]
  - Fatigue [Recovered/Resolved]
  - Catheter site pain [Recovered/Resolved with Sequelae]
  - Syncope [Recovered/Resolved]
  - Blood sodium decreased [Unknown]
  - Arthralgia [Recovered/Resolved]
  - Malignant melanoma [Fatal]
  - Spinal fracture [Unknown]
  - Back pain [Recovering/Resolving]

NARRATIVE: CASE EVENT DATE: 20170818
